FAERS Safety Report 9342999 (Version 3)
Quarter: 2014Q1

REPORT INFORMATION
  Report Type: Spontaneous
  Country: US (occurrence: US)
  Receive Date: 20130611
  Receipt Date: 20140221
  Transmission Date: 20141002
  Serious: Yes (Hospitalization)
  Sender: FDA-Public Use
  Company Number: US-B.I. PHARMACEUTICALS,INC./RIDGEFIELD-2013-BI-16114BP

PATIENT
  Age: 57 Year
  Sex: Female
  Weight: 127.01 kg

DRUGS (19)
  1. PRADAXA [Suspect]
     Indication: CEREBROVASCULAR ACCIDENT PROPHYLAXIS
     Dosage: 150 MG
     Route: 048
     Dates: start: 20110603, end: 20111203
  2. PRADAXA [Suspect]
     Indication: THROMBOSIS PROPHYLAXIS
  3. PRADAXA [Suspect]
     Indication: ATRIAL FIBRILLATION
  4. LOVAZA [Concomitant]
     Dosage: 40 MG
     Route: 048
  5. HYDRALAZINE [Concomitant]
     Dosage: 300 MG
     Route: 048
  6. CYMBALTA [Concomitant]
     Dosage: 60 MG
     Route: 048
  7. FUROSEMIDE [Concomitant]
     Dosage: 160 MG
     Route: 048
  8. CARTIA XT [Concomitant]
     Dosage: 240 MG
     Route: 048
  9. AMITRIPTYLINE [Concomitant]
     Dosage: 20 MG
     Route: 048
  10. BISOPROLOL [Concomitant]
     Dosage: 10 MG
     Route: 048
  11. LEVOTHYROXINE [Concomitant]
     Dosage: 0.75 MCG
     Route: 048
  12. AMITIZA [Concomitant]
     Dosage: 16 MCG
     Route: 048
  13. MIRTAZAPINE [Concomitant]
     Dosage: 30 MG
     Route: 048
  14. PROMETHAZINE [Concomitant]
     Dosage: 50 MG
     Route: 048
  15. LANTUS [Concomitant]
     Indication: DIABETES MELLITUS
     Route: 058
  16. NOVOLOG [Concomitant]
     Indication: DIABETES MELLITUS
     Route: 058
  17. PANTOPRAZOLE [Concomitant]
     Dosage: 40 MG
     Route: 048
  18. CIPRO [Concomitant]
  19. MORPHINE PUMP [Concomitant]

REACTIONS (3)
  - Lower gastrointestinal haemorrhage [Unknown]
  - Anaemia [Unknown]
  - Hypothermia [Unknown]
